FAERS Safety Report 22264980 (Version 1)
Quarter: 2023Q2

REPORT INFORMATION
  Report Type: Spontaneous
  Country: US (occurrence: US)
  Receive Date: 20230428
  Receipt Date: 20230428
  Transmission Date: 20230721
  Serious: Yes (Other)
  Sender: FDA-Public Use
  Company Number: US-MYOVANT SCIENCES GMBH-2023MYSCI0200492

PATIENT
  Age: 62 Year
  Sex: Male

DRUGS (21)
  1. ORGOVYX [Suspect]
     Active Substance: RELUGOLIX
     Indication: Prostate cancer
     Dosage: 240 MILLIGRAM, ONE TIME DOSE
     Route: 048
  2. ORGOVYX [Suspect]
     Active Substance: RELUGOLIX
     Dosage: 240 MILLIGRAM, QD
     Route: 048
  3. ORGOVYX [Suspect]
     Active Substance: RELUGOLIX
     Dosage: 360 MILLIGRAM, ONE TIME DOSE
     Route: 048
     Dates: start: 20220623, end: 20220623
  4. ORGOVYX [Suspect]
     Active Substance: RELUGOLIX
     Dosage: 120 MILLIGRAM, QD
     Route: 048
     Dates: start: 20220301, end: 202303
  5. AMITRIPTYLINE [Concomitant]
     Active Substance: AMITRIPTYLINE
     Indication: Product used for unknown indication
     Dosage: 10 MILLIGRAM, QD
     Route: 065
  6. ASPIRIN [Concomitant]
     Active Substance: ASPIRIN
     Indication: Cardiac disorder
     Dosage: 325 MILLIGRAM, QD
     Route: 065
     Dates: start: 20211220
  7. CALCIUM + D3                       /00944201/ [Concomitant]
     Indication: Prophylaxis
     Dosage: 1 DOSAGE FORM, QD
     Route: 065
     Dates: start: 20211220
  8. CYCLOBENZAPRINE [Concomitant]
     Active Substance: CYCLOBENZAPRINE
     Indication: Product used for unknown indication
     Dosage: UNK, TID
     Route: 065
  9. DEXAMETHASONE [Concomitant]
     Active Substance: DEXAMETHASONE
     Indication: Product used for unknown indication
     Dosage: 6 MILLIGRAM, QD
     Route: 065
     Dates: start: 20220406
  10. DULOXETINE [Concomitant]
     Active Substance: DULOXETINE
     Indication: Product used for unknown indication
     Dosage: 60 MILLIGRAM, QD
     Route: 065
  11. FLOMAX                             /01280302/ [Concomitant]
     Indication: Micturition urgency
     Dosage: 0.8 MILLIGRAM, QD
     Route: 065
     Dates: start: 20190807
  12. GABAPENTIN [Concomitant]
     Active Substance: GABAPENTIN
     Indication: Neuralgia
     Dosage: 300 MILLIGRAM, BID
     Route: 065
     Dates: start: 20190807
  13. HUMALOG [Concomitant]
     Active Substance: INSULIN LISPRO
     Indication: Diabetes mellitus
     Dosage: 6 UNIT, QD
     Route: 065
     Dates: start: 20211119
  14. INSULIN LISPRO [Concomitant]
     Active Substance: INSULIN LISPRO
     Indication: Diabetes mellitus
     Dosage: 10 UNIT, QD
     Route: 065
     Dates: start: 20220406
  15. MEGESTROL [Concomitant]
     Active Substance: MEGESTROL
     Indication: Product used for unknown indication
     Dosage: 20 MILLIGRAM, BID
     Route: 065
  16. METFORMIN [Concomitant]
     Active Substance: METFORMIN HYDROCHLORIDE
     Indication: Diabetes mellitus
     Dosage: 1000 MILLIGRAM, BID
     Route: 065
     Dates: start: 20131015
  17. NEULASTA [Concomitant]
     Active Substance: PEGFILGRASTIM
     Indication: Prophylaxis
     Dosage: 6 MILLIGRAM, QD
     Route: 048
     Dates: start: 20211026
  18. ONDASETRON                         /00955301/ [Concomitant]
     Indication: Nausea
     Dosage: 8 MILLIGRAM, PRN
     Route: 065
     Dates: start: 20211014
  19. TAXOTERE [Concomitant]
     Active Substance: DOCETAXEL
     Indication: Prostate cancer
     Dosage: 90 MILLIGRAM, ONE TIME DOSE
     Route: 042
     Dates: start: 20220406
  20. XGEVA [Concomitant]
     Active Substance: DENOSUMAB
     Indication: Bone loss
     Dosage: 120 MILLIGRAM, ONE TIME DOSE
     Route: 058
     Dates: start: 20230115
  21. XTANDI [Concomitant]
     Active Substance: ENZALUTAMIDE
     Indication: Prostate cancer
     Dosage: 2 DOSAGE FORM, QD
     Route: 065
     Dates: start: 20210901

REACTIONS (4)
  - Cerebrovascular accident [Unknown]
  - Therapy interrupted [Not Recovered/Not Resolved]
  - Incorrect dosage administered [Recovered/Resolved]
  - Incorrect dose administered [Recovered/Resolved]

NARRATIVE: CASE EVENT DATE: 20220623
